FAERS Safety Report 22365962 (Version 2)
Quarter: 2023Q4

REPORT INFORMATION
  Report Type: Spontaneous
  Country: US (occurrence: US)
  Receive Date: 20230525
  Receipt Date: 20231024
  Transmission Date: 20240110
  Serious: No
  Sender: FDA-Public Use
  Company Number: US-SA-SAC20230523001437

PATIENT
  Age: 30 Year
  Sex: Female

DRUGS (1)
  1. DUPIXENT [Suspect]
     Active Substance: DUPILUMAB
     Indication: Dermatitis atopic
     Dosage: 300 MG, QOW
     Route: 058
     Dates: start: 202303

REACTIONS (9)
  - Dry skin [Not Recovered/Not Resolved]
  - Hordeolum [Recovered/Resolved]
  - Skin exfoliation [Not Recovered/Not Resolved]
  - Condition aggravated [Not Recovered/Not Resolved]
  - Pruritus [Not Recovered/Not Resolved]
  - Pain of skin [Unknown]
  - Arthralgia [Recovered/Resolved]
  - Rash [Not Recovered/Not Resolved]
  - Drug effect less than expected [Unknown]

NARRATIVE: CASE EVENT DATE: 20230101
